FAERS Safety Report 6811289-3 (Version None)
Quarter: 2010Q2

REPORT INFORMATION
  Report Type: 
  Country: None (occurrence: None)
  Receive Date: 20100629
  Receipt Date: 20100629
  Transmission Date: 20101027
  Serious: Yes (Other)
  Sender: FDA-Public Use
  Company Number: None

PATIENT
  Age: 57 Year
  Sex: Male

DRUGS (5)
  1. ATRIPLA [Suspect]
     Indication: HIV INFECTION
     Dosage: 300 MG PO DAILY
     Route: 048
  2. KALETRA [Suspect]
  3. EFAVIRENZ [Concomitant]
  4. EMTRICITABINE [Concomitant]
  5. ENTECAVIR [Concomitant]

REACTIONS (2)
  - GLOMERULAR FILTRATION RATE INCREASED [None]
  - RENAL IMPAIRMENT [None]
